FAERS Safety Report 6818580-5 (Version None)
Quarter: 2010Q3

REPORT INFORMATION
  Report Type: 
  Country: None (occurrence: None)
  Receive Date: 20100706
  Receipt Date: 20090211
  Transmission Date: 20110219
  Serious: Yes (Other)
  Sender: FDA-Public Use
  Company Number: US-PFIZER INC-2009158273

PATIENT
  Sex: Female
  Weight: 71 kg

DRUGS (10)
  1. ZMAX [Suspect]
     Indication: SINUSITIS
     Dosage: UNK
     Route: 048
     Dates: start: 20081124, end: 20081125
  2. METOPROLOL [Concomitant]
     Dosage: UNK
     Route: 048
  3. CLONIDINE [Concomitant]
     Dosage: UNK
     Route: 048
  4. LIPITOR [Concomitant]
     Dosage: UNK
     Route: 048
  5. PREMARIN [Concomitant]
     Dosage: UNK
     Route: 048
  6. FUROSEMIDE [Concomitant]
     Dosage: UNK
     Route: 048
  7. OMEPRAZOLE [Concomitant]
     Dosage: UNK
     Route: 048
  8. ASPIRINE [Concomitant]
     Dosage: UNK
     Route: 048
  9. POTASSIUM [Concomitant]
     Dosage: UNK
     Route: 048
  10. VITAMIN D [Concomitant]
     Dosage: UNK
     Route: 058

REACTIONS (8)
  - CONTUSION [None]
  - DYSPHAGIA [None]
  - DYSPNOEA [None]
  - HYPERSENSITIVITY [None]
  - INSOMNIA [None]
  - ORAL PAIN [None]
  - PIGMENTATION DISORDER [None]
  - URTICARIA [None]
